FAERS Safety Report 21671953 (Version 6)
Quarter: 2023Q2

REPORT INFORMATION
  Report Type: Report from Study
  Country: CA (occurrence: CA)
  Receive Date: 20221202
  Receipt Date: 20230418
  Transmission Date: 20230721
  Serious: Yes (Hospitalization)
  Sender: FDA-Public Use
  Company Number: CA-JNJFOC-20221033916

PATIENT
  Age: 43 Year
  Sex: Female

DRUGS (5)
  1. REMICADE [Suspect]
     Active Substance: INFLIXIMAB
     Indication: Crohn^s disease
     Route: 042
     Dates: start: 20081006
  2. REMICADE [Suspect]
     Active Substance: INFLIXIMAB
     Route: 042
     Dates: start: 20180405
  3. REMICADE [Suspect]
     Active Substance: INFLIXIMAB
     Dosage: PATIENT RECEIVED 146TH INFUSION OF 1590 MG DOSE ON 29-NOV-2022 AND PARTIAL HARVEY-BRADSHAW COMPLETED
     Route: 042
     Dates: start: 20221129
  4. REMICADE [Suspect]
     Active Substance: INFLIXIMAB
     Route: 042
     Dates: start: 20230223
  5. PREDNISONE [Suspect]
     Active Substance: PREDNISONE
     Indication: Crohn^s disease
     Dosage: CURRENTLY TAPERING DOWN
     Route: 065

REACTIONS (8)
  - Crohn^s disease [Not Recovered/Not Resolved]
  - Weight increased [Unknown]
  - Stress [Unknown]
  - Adverse event [Unknown]
  - Dehydration [Unknown]
  - COVID-19 [Recovered/Resolved]
  - Drug ineffective [Unknown]
  - Inappropriate schedule of product administration [Unknown]

NARRATIVE: CASE EVENT DATE: 20221101
